FAERS Safety Report 11895248 (Version 1)
Quarter: 2016Q1

REPORT INFORMATION
  Report Type: Spontaneous
  Country: US (occurrence: None)
  Receive Date: 20160106
  Receipt Date: 20160106
  Transmission Date: 20160526
  Serious: No
  Sender: FDA-Public Use
  Company Number: None

PATIENT
  Age: 45 Year
  Sex: Male

DRUGS (1)
  1. SPRYCEL [Suspect]
     Active Substance: DASATINIB
     Indication: CHRONIC MYELOID LEUKAEMIA
     Route: 048
     Dates: start: 20130612

REACTIONS (5)
  - Vomiting [None]
  - Pyrexia [None]
  - Cough [None]
  - Influenza [None]
  - Nausea [None]

NARRATIVE: CASE EVENT DATE: 20151221
